FAERS Safety Report 14000071 (Version 1)
Quarter: 2017Q3

REPORT INFORMATION
  Report Type: Spontaneous
  Country: FR (occurrence: FR)
  Receive Date: 20170922
  Receipt Date: 20170922
  Transmission Date: 20171128
  Serious: Yes (Hospitalization)
  Sender: FDA-Public Use
  Company Number: FR-009507513-1709FRA009383

PATIENT
  Age: 30 Year
  Sex: Male

DRUGS (12)
  1. IMOVANE [Concomitant]
     Active Substance: ZOPICLONE
     Dosage: ONE FILM COATED TABLET, QD
     Route: 048
  2. LAROXYL [Concomitant]
     Active Substance: AMITRIPTYLINE
     Dosage: STRENGTH: 40MG/ML, 15 GTT, QD
  3. CETIRIZINE HYDROCHLORIDE. [Concomitant]
     Active Substance: CETIRIZINE HYDROCHLORIDE
     Dosage: 10 MG, QD
  4. DAFALGAN [Concomitant]
     Active Substance: ACETAMINOPHEN
     Dosage: 1 DF QD
  5. IMIPENEM AND CILASTATIN [Suspect]
     Active Substance: CILASTATIN SODIUM\IMIPENEM
     Indication: OSTEOMYELITIS
     Dosage: 3 G, QH
     Route: 042
     Dates: start: 20170703, end: 20170725
  6. SEVREDOL [Concomitant]
     Active Substance: MORPHINE
     Dosage: SCORED FILM,, IF REQUIRED
  7. FRAGMINE [Concomitant]
     Active Substance: DALTEPARIN SODIUM
     Dosage: ONE FRAGMINE 5000 U.I. ANTIXA/0.2ML, QD
  8. SERESTA [Concomitant]
     Active Substance: OXAZEPAM
     Dosage: ONE TABLET, QD
     Route: 048
  9. SKENAN [Concomitant]
     Active Substance: MORPHINE SULFATE
     Dosage: ONE PROLONGED RELEASED MICROGRANULE SIN CAPSULE, BID
     Route: 048
  10. DAPTOMYCIN. [Suspect]
     Active Substance: DAPTOMYCIN
     Indication: OSTEOMYELITIS
     Dosage: 700 MG, QD
     Route: 042
     Dates: start: 20170628, end: 20170725
  11. ZYVOXID [Suspect]
     Active Substance: LINEZOLID
     Indication: OSTEOMYELITIS
     Dosage: 600 MG, BID
     Route: 048
     Dates: start: 20170625, end: 20170725
  12. GABAPENTIN. [Concomitant]
     Active Substance: GABAPENTIN
     Dosage: 100 MG, TID

REACTIONS (2)
  - Thrombocytopenia [Recovered/Resolved]
  - Neutropenia [Recovered/Resolved]

NARRATIVE: CASE EVENT DATE: 20170725
